FAERS Safety Report 24860885 (Version 1)
Quarter: 2025Q1

REPORT INFORMATION
  Report Type: Spontaneous
  Country: IT (occurrence: IT)
  Receive Date: 20250120
  Receipt Date: 20250120
  Transmission Date: 20250408
  Serious: Yes (Other)
  Sender: ROCHE
  Company Number: IT-ROCHE-10000185210

PATIENT
  Age: 75 Year
  Sex: Female

DRUGS (1)
  1. RITUXIMAB [Suspect]
     Active Substance: RITUXIMAB
     Indication: Anti-myelin-associated glycoprotein associated polyneuropathy
     Route: 042

REACTIONS (3)
  - Blood immunoglobulin M increased [Recovering/Resolving]
  - Anti-myelin-associated glycoprotein associated polyneuropathy [Recovering/Resolving]
  - Colon cancer [Unknown]
